FAERS Safety Report 5177106-5 (Version None)
Quarter: 2006Q4

REPORT INFORMATION
  Report Type: 
  Country: None (occurrence: None)
  Receive Date: 20061207
  Receipt Date: 20061124
  Transmission Date: 20070319
  Serious: Yes (Death, Life-Threatening, Hospitalization, Other)
  Sender: FDA-Public Use
  Company Number: 2006143100

PATIENT
  Age: 63 Year
  Sex: Male
  Weight: 87.1 kg

DRUGS (11)
  1. SUTENT [Suspect]
     Indication: RENAL CELL CARCINOMA STAGE UNSPECIFIED
     Dosage: 37.5 MG (37.5 MG, 1 IN 1 D), ORAL
     Route: 048
     Dates: start: 20060601, end: 20061106
  2. DECADRON [Concomitant]
  3. COLACE (DOCUSATE SODIUM) [Concomitant]
  4. PHOSPHORUS (PHOSPHORUS) [Concomitant]
  5. FRAXIPARINE (HEPARIN-FRACTION, CALCIUM SALT) [Concomitant]
  6. OCTREOTIDE ACETATE [Concomitant]
  7. MAGNESIUM (MAGNESIUM) [Concomitant]
  8. CALCIUM (CALCIUM) [Concomitant]
  9. RANITIDINE [Concomitant]
  10. XALATAN [Concomitant]
  11. COSOPT [Concomitant]

REACTIONS (6)
  - DISEASE PROGRESSION [None]
  - GENERAL PHYSICAL HEALTH DETERIORATION [None]
  - NAUSEA [None]
  - RENAL FAILURE [None]
  - RETCHING [None]
  - VOMITING [None]
